FAERS Safety Report 8474051-4 (Version None)
Quarter: 2012Q2

REPORT INFORMATION
  Report Type: 
  Country: None (occurrence: None)
  Receive Date: 20120628
  Receipt Date: 20110720
  Transmission Date: 20120825
  Serious: Yes (Other)
  Sender: FDA-Public Use
  Company Number: US-MYLANLABS-2010S1010192

PATIENT
  Age: 60 Year
  Sex: Male
  Weight: 82.1 kg

DRUGS (10)
  1. CLOZAPINE [Suspect]
     Dates: start: 20100817
  2. SERTRALINE HYDROCHLORIDE [Concomitant]
  3. BUSPIRONE HCL [Concomitant]
  4. DIVALPROEX SODIUM [Concomitant]
  5. PRAVASTATIN [Concomitant]
  6. LAMICTAL [Concomitant]
  7. ZYPREXA [Concomitant]
  8. SINGULAIR [Concomitant]
  9. CLOZAPINE [Suspect]
     Indication: SCHIZOPHRENIA
     Dates: end: 20100813
  10. CLOZAPINE [Suspect]
     Dates: start: 20100817

REACTIONS (1)
  - GRANULOCYTOPENIA [None]
